FAERS Safety Report 9121075 (Version 2)
Quarter: 2013Q1

REPORT INFORMATION
  Report Type: Spontaneous
  Country: US (occurrence: US)
  Receive Date: 20130226
  Receipt Date: 20130301
  Transmission Date: 20140127
  Serious: Yes (Other)
  Sender: FDA-Public Use
  Company Number: US-SP-2013-03305

PATIENT
  Age: 29 Year
  Sex: Male

DRUGS (1)
  1. THERACYS [Suspect]
     Indication: ACCIDENTAL EXPOSURE TO PRODUCT
     Route: 065

REACTIONS (8)
  - Bovine tuberculosis [Recovered/Resolved]
  - Abscess limb [Recovered/Resolved]
  - Purulent discharge [Recovered/Resolved]
  - Tuberculin test positive [Recovered/Resolved]
  - Swelling [Recovered/Resolved]
  - Inflammation [Recovered/Resolved]
  - Mobility decreased [Recovered/Resolved]
  - Accidental exposure to product [Recovered/Resolved]
